FAERS Safety Report 6306964-3 (Version None)
Quarter: 2009Q3

REPORT INFORMATION
  Report Type: 
  Country: None (occurrence: None)
  Receive Date: 20090812
  Receipt Date: 20090805
  Transmission Date: 20100115
  Serious: Yes (Other)
  Sender: FDA-Public Use
  Company Number: US-ABBOTT-09P-163-0587992-00

PATIENT
  Age: 45 Year
  Sex: Male

DRUGS (3)
  1. CLARITHROMYCIN [Suspect]
     Indication: ACUTE SINUSITIS
     Dosage: NOT REPORTED
  2. CLARITHROMYCIN [Suspect]
     Route: 048
  3. CLARITHROMYCIN [Suspect]
     Route: 048

REACTIONS (2)
  - MUSCULAR WEAKNESS [None]
  - RHABDOMYOLYSIS [None]
